FAERS Safety Report 6877395-2 (Version None)
Quarter: 2010Q3

REPORT INFORMATION
  Report Type: 
  Country: None (occurrence: None)
  Receive Date: 20100719
  Receipt Date: 20100702
  Transmission Date: 20110219
  Serious: Yes (Other)
  Sender: FDA-Public Use
  Company Number: AEUSA201000241

PATIENT
  Age: 65 Year
  Sex: Female
  Weight: 63.05 kg

DRUGS (8)
  1. GAMUNEX [Suspect]
     Indication: MULTIFOCAL MOTOR NEUROPATHY
     Dosage: IV
     Route: 042
     Dates: start: 20090101
  2. BENADRYL [Concomitant]
  3. ACETAMINOPHEN [Concomitant]
  4. LOTREL [Concomitant]
  5. XANAX [Concomitant]
  6. NEXIUM [Concomitant]
  7. PREMARIN [Concomitant]
  8. WELLBUTRIN [Concomitant]

REACTIONS (4)
  - HEADACHE [None]
  - MUSCLE SPASMS [None]
  - MYALGIA [None]
  - PAIN [None]
